FAERS Safety Report 7185177-X (Version None)
Quarter: 2010Q4

REPORT INFORMATION
  Report Type: 
  Country: None (occurrence: None)
  Receive Date: 20101222
  Receipt Date: 20101201
  Transmission Date: 20110411
  Serious: Yes (Other)
  Sender: FDA-Public Use
  Company Number: DE-SANOFI-AVENTIS-2010SA072387

PATIENT

DRUGS (2)
  1. SOLOSTAR [Suspect]
     Route: 058
  2. LANTUS [Suspect]
     Route: 058

REACTIONS (2)
  - DEVICE MALFUNCTION [None]
  - DEVICE MISUSE [None]
